FAERS Safety Report 23088351 (Version 3)
Quarter: 2023Q4

REPORT INFORMATION
  Report Type: Spontaneous
  Country: JP (occurrence: JP)
  Receive Date: 20231020
  Receipt Date: 20231226
  Transmission Date: 20240109
  Serious: Yes (Hospitalization, Other)
  Sender: FDA-Public Use
  Company Number: JP-GLAXOSMITHKLINE-JP2023JPN142197

PATIENT

DRUGS (9)
  1. DAPRODUSTAT [Suspect]
     Active Substance: DAPRODUSTAT
     Indication: Nephrogenic anaemia
     Dosage: 4 MG
     Dates: start: 20220727
  2. DAPRODUSTAT [Suspect]
     Active Substance: DAPRODUSTAT
     Dosage: 2 MG
  3. LOKELMA [Suspect]
     Active Substance: SODIUM ZIRCONIUM CYCLOSILICATE
     Dosage: 5 G
  4. VILDAGLIPTIN [Suspect]
     Active Substance: VILDAGLIPTIN
     Dosage: 50 MG, BID
  5. FEBUXOSTAT [Suspect]
     Active Substance: FEBUXOSTAT
     Dosage: 10 MG, 1D
  6. ARICEPT [Suspect]
     Active Substance: DONEPEZIL HYDROCHLORIDE
     Dosage: 30 MG, 1D
  7. LASIX [Suspect]
     Active Substance: FUROSEMIDE
     Dosage: 20 MG, 1D
  8. PRANLUKAST HEMIHYDRATE [Suspect]
     Active Substance: PRANLUKAST HEMIHYDRATE
     Dosage: 450 MG, BID
  9. DARBEPOETIN ALFA [Concomitant]
     Active Substance: DARBEPOETIN ALFA
     Indication: Nephrogenic anaemia
     Dosage: 60 ?G, ONCE EVERY 2 WEEKS

REACTIONS (3)
  - Renal failure [Unknown]
  - Hyperkalaemia [Unknown]
  - Renal cancer [Unknown]
